FAERS Safety Report 17788488 (Version 1)
Quarter: 2020Q2

REPORT INFORMATION
  Report Type: Report from Study
  Country: NL (occurrence: NL)
  Receive Date: 20200514
  Receipt Date: 20200514
  Transmission Date: 20200714
  Serious: Yes (Other)
  Sender: FDA-Public Use
  Company Number: NL-JNJFOC-20200505321

PATIENT
  Age: 40 Year
  Sex: Female

DRUGS (12)
  1. STELARA [Suspect]
     Active Substance: USTEKINUMAB
     Indication: CROHN^S DISEASE
     Route: 058
     Dates: start: 20170926, end: 20170926
  2. AZATHIOPRINE. [Concomitant]
     Active Substance: AZATHIOPRINE
     Dates: start: 20190330
  3. SODIUM DIHYDROGEN PHOSPHATE [Concomitant]
     Active Substance: SODIUM PHOSPHATE
     Dates: start: 20171031, end: 20180913
  4. MESALAZINE [Concomitant]
     Active Substance: MESALAMINE
     Route: 048
     Dates: start: 20171006, end: 20171006
  5. POTASSIUM PHOSPHATE MONOBASIC W/SOD/00364301/ [Concomitant]
     Dates: start: 20171025, end: 20171025
  6. FOSFAATDRANK 1MMOL/ML (NATRIUMDIWATERSTOFFOSFAAT) [Concomitant]
     Dates: start: 20171006, end: 20171006
  7. MESALAZINE [Concomitant]
     Active Substance: MESALAMINE
     Dates: start: 20190329
  8. METHOTREXATE. [Concomitant]
     Active Substance: METHOTREXATE
     Dates: start: 20171006, end: 20171006
  9. SODIUM DIHYDROGEN PHOSPHATE [Concomitant]
     Active Substance: SODIUM PHOSPHATE
     Dates: start: 20171006, end: 20171006
  10. METHOTREXATE. [Concomitant]
     Active Substance: METHOTREXATE
     Route: 065
     Dates: start: 20080101, end: 20190329
  11. FOSFAATDRANK 1MMOL/ML (NATRIUMDIWATERSTOFFOSFAAT) [Concomitant]
     Dates: start: 20170927, end: 20180326
  12. POTASSIUM PHOSPHATE MONOBASIC W/SOD/00364301/ [Concomitant]
     Dates: start: 20171120, end: 20180624

REACTIONS (1)
  - Pneumonia [Recovered/Resolved]

NARRATIVE: CASE EVENT DATE: 20180102
